FAERS Safety Report 5163862-9 (Version None)
Quarter: 2006Q4

REPORT INFORMATION
  Report Type: 
  Country: None (occurrence: None)
  Receive Date: 20061121
  Receipt Date: 20061116
  Transmission Date: 20070319
  Serious: Yes (Other)
  Sender: FDA-Public Use
  Company Number: 2006142695

PATIENT
  Age: 4 Year
  Sex: Female

DRUGS (1)
  1. DESITIN DIAPER RASH (ZINC OXIDE) [Suspect]
     Indication: DERMATITIS DIAPER
     Dosage: USED ^LIBERALLY^ EVERY DIAPER CHANGE, TOPICA;
     Route: 061
     Dates: start: 19860101, end: 19910101

REACTIONS (1)
  - OVARIAN CYST RUPTURED [None]
